FAERS Safety Report 4598117-4 (Version None)
Quarter: 2005Q1

REPORT INFORMATION
  Report Type: 
  Country: None (occurrence: None)
  Receive Date: 20050301
  Receipt Date: 20050301
  Transmission Date: 20050727
  Serious: Yes (Other)
  Sender: FDA-Public Use
  Company Number: None

PATIENT
  Age: 63 Year
  Sex: Male

DRUGS (3)
  1. NORVASC [Suspect]
     Indication: HYPERTENSION
     Dosage: TABLET
     Dates: start: 20041201, end: 20050116
  2. SYNTHROID [Concomitant]
  3. SINGULAIR [Concomitant]

REACTIONS (8)
  - DYSPHONIA [None]
  - EYE MOVEMENT DISORDER [None]
  - FATIGUE [None]
  - HEADACHE [None]
  - MUSCLE SPASMS [None]
  - MUSCLE TWITCHING [None]
  - SWELLING [None]
  - TREMOR [None]
